FAERS Safety Report 18782578 (Version 1)
Quarter: 2021Q1

REPORT INFORMATION
  Report Type: Spontaneous
  Country: AU (occurrence: AU)
  Receive Date: 20210125
  Receipt Date: 20210125
  Transmission Date: 20210419
  Serious: Yes (Death, Other)
  Sender: FDA-Public Use
  Company Number: AU-SA-2021SA018161

PATIENT
  Age: 3 Year
  Sex: Male

DRUGS (28)
  1. ANTI?THYMOCYTE GLOBULIN (RABBIT) NOS [Suspect]
     Active Substance: LAPINE T-LYMPHOCYTE IMMUNE GLOBULIN
     Indication: ACUTE LYMPHOCYTIC LEUKAEMIA
  2. PREDNISOLONE. [Suspect]
     Active Substance: PREDNISOLONE
     Indication: GRAFT VERSUS HOST DISEASE IN SKIN
     Dosage: 0.3 MG/KG, QD
  3. SULFAMETHOXAZOLE/TRIMETHOPRIM [Suspect]
     Active Substance: SULFAMETHOXAZOLE\TRIMETHOPRIM
  4. LOPERAMIDE [Suspect]
     Active Substance: LOPERAMIDE
  5. CYCLOSPORIN [Suspect]
     Active Substance: CYCLOSPORINE
     Indication: PROPHYLAXIS AGAINST GRAFT VERSUS HOST DISEASE
     Dosage: UNK
  6. FLUCONAZOLE. [Concomitant]
     Active Substance: FLUCONAZOLE
  7. GENTAMICIN. [Concomitant]
     Active Substance: GENTAMICIN
  8. VANCOMYCIN [Concomitant]
     Active Substance: VANCOMYCIN
  9. PREDNISOLONE. [Suspect]
     Active Substance: PREDNISOLONE
     Dosage: WEANED
  10. PREDNISOLONE. [Suspect]
     Active Substance: PREDNISOLONE
     Indication: GRAFT VERSUS HOST DISEASE IN GASTROINTESTINAL TRACT
     Dosage: 2 MG/KG, QD
  11. ONDANSETRON [Suspect]
     Active Substance: ONDANSETRON
  12. GRANULOCYTE COLONY STIMULATING FACTOR [Suspect]
     Active Substance: GRANULOCYTE COLONY-STIMULATING FACTOR NOS
  13. ANTI?THYMOCYTE GLOBULIN (RABBIT) NOS [Suspect]
     Active Substance: LAPINE T-LYMPHOCYTE IMMUNE GLOBULIN
     Indication: IMMUNOSUPPRESSANT DRUG THERAPY
     Dosage: 30 MG/KG, QD, ON DAYS ?7, ?5 AND ?2 (TOTAL DOSE = 90 MG/KG)
  14. LISINOPRIL. [Suspect]
     Active Substance: LISINOPRIL
  15. PARACETAMOL [Suspect]
     Active Substance: ACETAMINOPHEN
  16. CYCLOSPORIN [Suspect]
     Active Substance: CYCLOSPORINE
     Indication: GRAFT VERSUS HOST DISEASE IN SKIN
  17. MEROPENEM. [Concomitant]
     Active Substance: MEROPENEM
  18. RANITIDINE. [Suspect]
     Active Substance: RANITIDINE
     Dosage: UNK
  19. MELPHALAN. [Suspect]
     Active Substance: MELPHALAN
     Indication: ACUTE LYMPHOCYTIC LEUKAEMIA
  20. MYCOPHENOLATE MOFETIL. [Suspect]
     Active Substance: MYCOPHENOLATE MOFETIL
     Indication: GRAFT VERSUS HOST DISEASE IN SKIN
     Dosage: 250 MG/M2, QD
  21. AMIKACIN. [Concomitant]
     Active Substance: AMIKACIN
  22. TICARCILLIN DISODIUM AND POTASSIUM CLAVULANATE [Concomitant]
  23. VALACICLOVIR [Concomitant]
     Active Substance: VALACYCLOVIR HYDROCHLORIDE
  24. PROBENECID. [Concomitant]
     Active Substance: PROBENECID
  25. MYCOPHENOLATE MOFETIL. [Suspect]
     Active Substance: MYCOPHENOLATE MOFETIL
     Indication: GRAFT VERSUS HOST DISEASE IN GASTROINTESTINAL TRACT
  26. FUROSEMIDE. [Suspect]
     Active Substance: FUROSEMIDE
  27. MELPHALAN. [Suspect]
     Active Substance: MELPHALAN
     Indication: IMMUNOSUPPRESSANT DRUG THERAPY
     Dosage: 140 MG/M2, ON DAY ?2
  28. CYCLOSPORIN [Suspect]
     Active Substance: CYCLOSPORINE
     Indication: GRAFT VERSUS HOST DISEASE IN GASTROINTESTINAL TRACT

REACTIONS (8)
  - Pancreatitis acute [Recovered/Resolved]
  - Adenovirus infection [Recovered/Resolved]
  - Infection [Unknown]
  - Vomiting [Recovered/Resolved]
  - Lymphopenia [Recovered/Resolved]
  - Bacterial infection [Fatal]
  - Abdominal pain [Recovered/Resolved]
  - Diarrhoea [Recovered/Resolved]
